FAERS Safety Report 14474460 (Version 2)
Quarter: 2018Q2

REPORT INFORMATION
  Report Type: Report from Study
  Country: IE (occurrence: IE)
  Receive Date: 20180201
  Receipt Date: 20180530
  Transmission Date: 20180711
  Serious: Yes (Other)
  Sender: FDA-Public Use
  Company Number: IE-BAYER-2017-226095

PATIENT
  Age: 80 Year
  Sex: Male

DRUGS (2)
  1. NEXAVAR [Suspect]
     Active Substance: SORAFENIB
     Indication: HEPATOCELLULAR CARCINOMA
     Dosage: 400 MG, BID
     Route: 048
     Dates: start: 20171107, end: 20171127
  2. NEXAVAR [Suspect]
     Active Substance: SORAFENIB
     Indication: HEPATOCELLULAR CARCINOMA
     Dosage: 200 MG, BID
     Route: 048
     Dates: end: 20180124

REACTIONS (11)
  - Toxicity to various agents [Not Recovered/Not Resolved]
  - Fatigue [Not Recovered/Not Resolved]
  - Rash generalised [Not Recovered/Not Resolved]
  - Decreased appetite [None]
  - General physical health deterioration [Not Recovered/Not Resolved]
  - Flushing [Not Recovered/Not Resolved]
  - Rash maculo-papular [Recovered/Resolved]
  - Night sweats [None]
  - Increased bronchial secretion [Not Recovered/Not Resolved]
  - Pain [None]
  - Weight decreased [None]

NARRATIVE: CASE EVENT DATE: 20171116
